FAERS Safety Report 4876566-4 (Version None)
Quarter: 2005Q4

REPORT INFORMATION
  Report Type: 
  Country: None (occurrence: None)
  Receive Date: 20051206
  Receipt Date: 20050823
  Transmission Date: 20060501
  Serious: No
  Sender: FDA-Public Use
  Company Number: USA0506101675

PATIENT
  Sex: Female
  Weight: 58 kg

DRUGS (3)
  1. CYMBALTA [Suspect]
     Indication: DEPRESSION
     Dosage: 60 MG DAY
  2. ESTRADERM [Concomitant]
  3. TOPROL-XL [Concomitant]

REACTIONS (1)
  - ABNORMAL DREAMS [None]
